FAERS Safety Report 5706339-1 (Version None)
Quarter: 2008Q2

REPORT INFORMATION
  Report Type: 
  Country: None (occurrence: None)
  Receive Date: 20080411
  Receipt Date: 20080327
  Transmission Date: 20081010
  Serious: Yes (Death)
  Sender: FDA-Public Use
  Company Number: MK-6024650

PATIENT
  Age: 63 Year
  Sex: Female

DRUGS (12)
  1. CITALOPRAM HYDROBROMIDE [Suspect]
     Dosage: 10 MG; DAILY
  2. OMEPRAZOLE [Suspect]
     Dosage: 20 MG; DAILY
  3. PERINDOPRIL ERBUMINE [Suspect]
     Indication: HYPERTENSION
     Dosage: 4 MG; DAILY; ORAL
     Route: 048
  4. ADIZEM [Concomitant]
  5. BECOTIDE [Concomitant]
  6. FUROSEMIDE [Concomitant]
  7. ALBUTEROL [Concomitant]
  8. SENNA [Concomitant]
  9. VITAMIN B COMPLEX CAP [Concomitant]
  10. THIAMINE [Concomitant]
  11. OLANZAPINE [Concomitant]
  12. PARACETAMOL [Concomitant]

REACTIONS (3)
  - ANGIOEDEMA [None]
  - DYSPNOEA [None]
  - HYPERSENSITIVITY [None]
